FAERS Safety Report 8100931-5 (Version None)
Quarter: 2012Q1

REPORT INFORMATION
  Report Type: 
  Country: None (occurrence: None)
  Receive Date: 20120129
  Receipt Date: 20110919
  Transmission Date: 20120608
  Serious: No
  Sender: FDA-Public Use
  Company Number: US-ABBOTT-11P-163-0856370-00

PATIENT
  Sex: Male

DRUGS (2)
  1. LEVOTHYROXINE SODIUM [Concomitant]
     Indication: HYPOTHYROIDISM
     Dates: start: 19950101
  2. HUMIRA [Suspect]
     Indication: PSORIASIS
     Dates: start: 20110715

REACTIONS (1)
  - INITIAL INSOMNIA [None]
